FAERS Safety Report 9398736 (Version 1)
Quarter: 2013Q3

REPORT INFORMATION
  Report Type: Spontaneous
  Country: FR (occurrence: FR)
  Receive Date: 20130712
  Receipt Date: 20130712
  Transmission Date: 20140515
  Serious: Yes (Hospitalization)
  Sender: FDA-Public Use
  Company Number: FR-TEVA-417397ISR

PATIENT
  Age: 92 Year
  Sex: Male

DRUGS (6)
  1. FUROSEMIDE TEVA 40 MG, SCORED TABLET [Suspect]
     Indication: HYPERTENSION
     Dosage: 1 DOSAGE FORMS DAILY;
     Route: 048
     Dates: end: 201306
  2. XANAX [Concomitant]
     Indication: SLEEP DISORDER
     Dosage: SINCE SEVERAL YEARS
  3. SEROPLEX [Concomitant]
     Indication: AFFECTIVE DISORDER
     Dosage: SINCE SEVERAL YEARS
  4. ARICEPT [Concomitant]
     Indication: DEMENTIA ALZHEIMER^S TYPE
     Dosage: SINCE SEVERAL YEARS
  5. MODOPAR [Concomitant]
     Indication: PARKINSON^S DISEASE
     Dosage: SINCE SEVERAL YEARS
  6. REPAGLINIDE [Concomitant]
     Dosage: SINCE SEVERAL YEARS

REACTIONS (2)
  - Oedema [Not Recovered/Not Resolved]
  - Pulmonary embolism [Not Recovered/Not Resolved]
